FAERS Safety Report 17796803 (Version 8)
Quarter: 2025Q1

REPORT INFORMATION
  Report Type: Spontaneous
  Country: ES (occurrence: ES)
  Receive Date: 20200518
  Receipt Date: 20250106
  Transmission Date: 20250409
  Serious: Yes (Death, Life-Threatening, Hospitalization, Other)
  Sender: AUROBINDO
  Company Number: ES-ASPEN-GLO2020ES004602

PATIENT
  Age: 65 Year
  Sex: Female

DRUGS (15)
  1. FLUCONAZOLE [Suspect]
     Active Substance: FLUCONAZOLE
     Indication: Infection prophylaxis
     Dosage: 400 MILLIGRAM, ONCE A DAY
     Route: 065
  2. FLUDARABINE [Suspect]
     Active Substance: FLUDARABINE PHOSPHATE
     Indication: Allogenic stem cell transplantation
     Route: 065
  3. LEVOFLOXACIN [Suspect]
     Active Substance: LEVOFLOXACIN
     Indication: Infection prophylaxis
     Dosage: 500 MILLIGRAM, ONCE A DAY
     Route: 065
  4. MYCOPHENOLIC ACID [Suspect]
     Active Substance: MYCOPHENOLIC ACID
     Indication: Immunosuppression
     Route: 065
  5. MYCOPHENOLIC ACID [Suspect]
     Active Substance: MYCOPHENOLIC ACID
     Indication: Stem cell transplant
  6. MYCOPHENOLIC ACID [Suspect]
     Active Substance: MYCOPHENOLIC ACID
     Indication: Immunosuppressant drug therapy
  7. ACYCLOVIR [Suspect]
     Active Substance: ACYCLOVIR
     Indication: Infection prophylaxis
     Dosage: 800 MILLIGRAM, TWO TIMES A DAY (1600 MG ONCE  A DAY)
     Route: 065
  8. BUSULFAN [Suspect]
     Active Substance: BUSULFAN
     Indication: Bone marrow conditioning regimen
     Route: 065
  9. CYCLOPHOSPHAMIDE [Suspect]
     Active Substance: CYCLOPHOSPHAMIDE
     Indication: Prophylaxis against graft versus host disease
     Route: 065
  10. ENVARSUS XR [Suspect]
     Active Substance: TACROLIMUS
     Indication: Immunosuppression
     Route: 065
  11. ENVARSUS XR [Suspect]
     Active Substance: TACROLIMUS
     Indication: Stem cell transplant
  12. ENVARSUS XR [Suspect]
     Active Substance: TACROLIMUS
     Indication: Immunosuppressant drug therapy
  13. GENOXAL [Suspect]
     Active Substance: CYCLOPHOSPHAMIDE
     Indication: Prophylaxis against graft versus host disease
     Route: 065
  14. TACROLIMUS [Suspect]
     Active Substance: TACROLIMUS
     Indication: Immunosuppressant drug therapy
     Route: 065
  15. TACROLIMUS [Suspect]
     Active Substance: TACROLIMUS
     Indication: Stem cell transplant

REACTIONS (31)
  - Disseminated mucormycosis [Fatal]
  - Respiratory failure [Fatal]
  - Arteritis infective [Fatal]
  - Systemic mycosis [Fatal]
  - Fungal infection [Fatal]
  - Mucosal inflammation [Fatal]
  - Pulmonary embolism [Fatal]
  - Cerebral artery thrombosis [Fatal]
  - Fat necrosis [Fatal]
  - Splenic vein thrombosis [Fatal]
  - Haemodynamic instability [Fatal]
  - Gastrointestinal necrosis [Fatal]
  - Haematoma [Fatal]
  - Hypoxic-ischaemic encephalopathy [Fatal]
  - Thrombosis [Fatal]
  - Cerebral infarction [Fatal]
  - Cardio-respiratory arrest [Fatal]
  - Haemorrhage [Fatal]
  - Ischaemic stroke [Fatal]
  - Gastritis fungal [Fatal]
  - Pancreatitis necrotising [Fatal]
  - Thrombocytopenia [Fatal]
  - Pulmonary infarction [Fatal]
  - Acquired macroglossia [Fatal]
  - Epistaxis [Fatal]
  - Septic embolus [Fatal]
  - Neutropenia [Fatal]
  - Respiratory disorder [Fatal]
  - Off label use [Unknown]
  - Pyrexia [Unknown]
  - Product use in unapproved indication [Unknown]
